FAERS Safety Report 9017809 (Version 1)
Quarter: 2013Q1

REPORT INFORMATION
  Report Type: Spontaneous
  Country: US (occurrence: US)
  Receive Date: 20130118
  Receipt Date: 20130118
  Transmission Date: 20140127
  Serious: Yes (Hospitalization)
  Sender: FDA-Public Use
  Company Number: US-BIOGENIDEC-2013BI004074

PATIENT
  Sex: Female

DRUGS (16)
  1. AVONEX [Suspect]
     Indication: MULTIPLE SCLEROSIS
     Route: 030
     Dates: start: 19991015
  2. AVONEX [Suspect]
     Indication: MULTIPLE SCLEROSIS
     Route: 030
  3. REMERON [Concomitant]
     Indication: INSOMNIA
  4. FOSAMAX [Concomitant]
     Route: 048
  5. LEXAPRO [Concomitant]
     Route: 048
  6. MIRTAZAPINE [Concomitant]
     Route: 048
  7. ZOCOR [Concomitant]
     Route: 048
  8. METOPROLOL [Concomitant]
     Route: 048
  9. FOLIC ACID [Concomitant]
     Route: 048
  10. LISINOPRIL/HCTZ [Concomitant]
     Route: 048
  11. VITAMIN D [Concomitant]
     Route: 048
  12. CALCIUM [Concomitant]
     Route: 048
  13. VITAMIN B COMPLEX [Concomitant]
     Dosage: DOSE UNIT:1 UNKNOWN
     Route: 048
  14. CYANOCOBALAMIN [Concomitant]
     Route: 048
  15. DOCUSATE SODIUM [Concomitant]
     Route: 048
  16. ASPIRIN [Concomitant]
     Route: 048

REACTIONS (12)
  - Rib fracture [Unknown]
  - Spinal fracture [Recovered/Resolved]
  - Head injury [Unknown]
  - Fall [Recovered/Resolved]
  - Tachycardia [Unknown]
  - Lumbar vertebral fracture [Unknown]
  - Dysphagia [Not Recovered/Not Resolved]
  - Bladder dysfunction [Not Recovered/Not Resolved]
  - Back pain [Not Recovered/Not Resolved]
  - Hypoaesthesia [Not Recovered/Not Resolved]
  - Pain [Not Recovered/Not Resolved]
  - Fatigue [Not Recovered/Not Resolved]
